FAERS Safety Report 23345740 (Version 1)
Quarter: 2023Q4

REPORT INFORMATION
  Report Type: Report from Study
  Country: CN (occurrence: CN)
  Receive Date: 20231228
  Receipt Date: 20231228
  Transmission Date: 20240110
  Serious: Yes (Hospitalization)
  Sender: FDA-Public Use
  Company Number: CN-Eisai-EC-2023-155859

PATIENT
  Age: 59 Year
  Sex: Male
  Weight: 64 kg

DRUGS (12)
  1. LENVATINIB [Suspect]
     Active Substance: LENVATINIB
     Indication: Hepatocellular carcinoma
     Route: 048
     Dates: start: 20230314, end: 20230424
  2. LENVATINIB [Suspect]
     Active Substance: LENVATINIB
     Route: 048
     Dates: start: 20230427, end: 20230516
  3. LENVATINIB [Suspect]
     Active Substance: LENVATINIB
     Route: 048
     Dates: start: 20230519, end: 20230628
  4. LENVATINIB [Suspect]
     Active Substance: LENVATINIB
     Route: 048
     Dates: start: 20230701, end: 20230723
  5. LENVATINIB [Suspect]
     Active Substance: LENVATINIB
     Route: 048
     Dates: start: 20230726
  6. TORIPALIMAB [Suspect]
     Active Substance: TORIPALIMAB
     Indication: Hepatocellular carcinoma
     Dosage: BLINDED DOSE
     Route: 042
     Dates: start: 20230314, end: 20230404
  7. TORIPALIMAB [Suspect]
     Active Substance: TORIPALIMAB
     Dosage: BLINDED DOSE
     Route: 042
     Dates: start: 20230427, end: 20230607
  8. TORIPALIMAB [Suspect]
     Active Substance: TORIPALIMAB
     Dosage: BLINDED DOSE
     Route: 042
     Dates: start: 202307, end: 202307
  9. TORIPALIMAB [Suspect]
     Active Substance: TORIPALIMAB
     Dosage: BLINDED DOSE
     Route: 042
     Dates: start: 20230726
  10. ENTECAVIR [Concomitant]
     Active Substance: ENTECAVIR
     Indication: Chronic hepatitis B
     Dates: start: 2022
  11. LEUCOGEN [Concomitant]
     Active Substance: LEUCOGEN
     Indication: White blood cell count decreased
  12. LEUCOGEN [Concomitant]
     Active Substance: LEUCOGEN
     Indication: Neutrophil count decreased

REACTIONS (1)
  - Neutrophil count decreased [Recovered/Resolved]

NARRATIVE: CASE EVENT DATE: 20230425
